FAERS Safety Report 11360536 (Version 1)
Quarter: 2015Q3

REPORT INFORMATION
  Report Type: Report from Study
  Country: US (occurrence: US)
  Receive Date: 20150810
  Receipt Date: 20150810
  Transmission Date: 20151125
  Serious: No
  Sender: FDA-Public Use
  Company Number: PHEH2015US007133

PATIENT
  Age: 41 Year
  Sex: Female

DRUGS (4)
  1. EXTAVIA [Suspect]
     Active Substance: INTERFERON BETA-1B
     Dosage: WEEKS 3 TO 4, 0.5 ML (0.125 MG), QOD
     Route: 058
  2. EXTAVIA [Suspect]
     Active Substance: INTERFERON BETA-1B
     Indication: MULTIPLE SCLEROSIS
     Dosage: WEEKS 1 TO 2, 0.25 ML, (0.0625MG) QOD
     Route: 058
     Dates: start: 20150317
  3. EXTAVIA [Suspect]
     Active Substance: INTERFERON BETA-1B
     Dosage: WEEKS 5 TO 6, 0.75 ML, (0.1875 MG) QOD
     Route: 058
  4. EXTAVIA [Suspect]
     Active Substance: INTERFERON BETA-1B
     Dosage: WEEKS 7+, 1 ML, (0/25 MG) QOD
     Route: 058

REACTIONS (3)
  - Chills [Unknown]
  - Injection site bruising [Unknown]
  - Weight decreased [Unknown]

NARRATIVE: CASE EVENT DATE: 20150317
